FAERS Safety Report 9648391 (Version 1)
Quarter: 2013Q4

REPORT INFORMATION
  Report Type: Spontaneous
  Country: US (occurrence: US)
  Receive Date: 20131028
  Receipt Date: 20131028
  Transmission Date: 20140711
  Serious: No
  Sender: FDA-Public Use
  Company Number: US-009507513-1310USA009817

PATIENT
  Age: 39 Year
  Sex: Female
  Weight: 128 kg

DRUGS (1)
  1. NUVARING [Suspect]
     Indication: CONTRACEPTION
     Dosage: UNK, 3 WEEKS IN, 1 WEEK RING-FREE BREAKUNK
     Route: 067
     Dates: start: 201304

REACTIONS (1)
  - Metrorrhagia [Unknown]
